FAERS Safety Report 10969431 (Version 2)
Quarter: 2015Q1

REPORT INFORMATION
  Report Type: Spontaneous
  Country: US (occurrence: US)
  Receive Date: 20150331
  Receipt Date: 20150331
  Transmission Date: 20150721
  Serious: Yes (Other)
  Sender: FDA-Public Use
  Company Number: US-PAR PHARMACEUTICAL, INC-2011SE26230

PATIENT

DRUGS (21)
  1. RHINOCORT AQUA [Suspect]
     Active Substance: BUDESONIDE
     Indication: ASTHMA
     Dosage: 32 MCG, 2 SPRAYS IN EACH NOSTRIL QD
     Route: 045
  2. UNSPECIFIED (UNSPECIFIED) [Concomitant]
     Indication: BLOOD CHOLESTEROL INCREASED
  3. NASAL PREPARATIONS [Concomitant]
     Indication: HYPERSENSITIVITY
     Dosage: UNK UNK, UNKNOWN
     Route: 045
  4. ACCOLATE [Suspect]
     Active Substance: ZAFIRLUKAST
     Dosage: 20 MG, DAILY
     Route: 048
  5. LISINOPRIL. [Suspect]
     Active Substance: LISINOPRIL
     Indication: PRODUCT USED FOR UNKNOWN INDICATION
     Dosage: UNK, UNKNOWN
     Route: 048
  6. ZOLPIDEM TARTRATE. [Concomitant]
     Active Substance: ZOLPIDEM TARTRATE
     Indication: PRODUCT USED FOR UNKNOWN INDICATION
     Dosage: 10 MG, UNKNOWN
     Route: 048
  7. NASAL PREPARATIONS [Concomitant]
     Indication: LUNG DISORDER
  8. NEXIUM [Suspect]
     Active Substance: ESOMEPRAZOLE MAGNESIUM
     Indication: GASTROOESOPHAGEAL REFLUX DISEASE
     Dosage: UNK, ONE PER DAY
     Route: 048
  9. CRESTOR [Suspect]
     Active Substance: ROSUVASTATIN CALCIUM
     Indication: BLOOD CHOLESTEROL INCREASED
     Dosage: 5 MG, HS
     Route: 048
  10. NASAL PREPARATIONS [Concomitant]
     Indication: BLOOD PRESSURE ABNORMAL
  11. RHINOCORT AQUA [Suspect]
     Active Substance: BUDESONIDE
     Indication: SINUSITIS
  12. NEXIUM [Suspect]
     Active Substance: ESOMEPRAZOLE MAGNESIUM
     Dosage: UNK, TWO PER DAY
     Route: 048
  13. NEXIUM [Suspect]
     Active Substance: ESOMEPRAZOLE MAGNESIUM
     Dosage: 40 MG, DAILY
     Route: 048
  14. UNSPECIFIED (UNSPECIFIED) [Concomitant]
     Indication: NERVOUS SYSTEM DISORDER
     Dosage: UNK, UNKNOWN
     Route: 048
  15. UNSPECIFIED (UNSPECIFIED) [Concomitant]
     Indication: DIURETIC THERAPY
  16. NEXIUM [Suspect]
     Active Substance: ESOMEPRAZOLE MAGNESIUM
     Dosage: 40 MG, BID
     Route: 048
  17. GABAPENTIN. [Concomitant]
     Active Substance: GABAPENTIN
     Indication: PRODUCT USED FOR UNKNOWN INDICATION
     Dosage: UNK UNK, UNKNOWN
     Route: 048
  18. UNSPECIFIED (UNSPECIFIED) [Concomitant]
     Indication: BLOOD PRESSURE ABNORMAL
  19. NASAL PREPARATIONS [Concomitant]
     Indication: NASAL DISORDER
  20. ACCOLATE [Suspect]
     Active Substance: ZAFIRLUKAST
     Indication: ASTHMA
     Dosage: 20 MG, BID
     Route: 048
  21. TOPROL XL [Suspect]
     Active Substance: METOPROLOL SUCCINATE
     Indication: PRODUCT USED FOR UNKNOWN INDICATION
     Dosage: 50 MG, HS
     Route: 048

REACTIONS (25)
  - Back disorder [Unknown]
  - Oral mucosal blistering [Unknown]
  - Productive cough [Unknown]
  - Paranasal sinus hypersecretion [Unknown]
  - Drug hypersensitivity [Unknown]
  - Cough [Unknown]
  - Gastrooesophageal reflux disease [Unknown]
  - Stomatitis [Unknown]
  - Rhinorrhoea [Unknown]
  - Body height decreased [Unknown]
  - Weight decreased [Unknown]
  - Intentional product misuse [Unknown]
  - Fall [Unknown]
  - Wrist fracture [Unknown]
  - Drug ineffective [Unknown]
  - Off label use [Unknown]
  - Cheilitis [Unknown]
  - Lung disorder [Unknown]
  - Asthma [Unknown]
  - Dysgeusia [Unknown]
  - Drug dose omission [Unknown]
  - Sinusitis [Unknown]
  - Nasal congestion [Unknown]
  - Mental impairment [Unknown]
  - Blood glucose abnormal [Unknown]

NARRATIVE: CASE EVENT DATE: 20150123
